FAERS Safety Report 18632508 (Version 1)
Quarter: 2020Q4

REPORT INFORMATION
  Report Type: Spontaneous
  Country: US (occurrence: US)
  Receive Date: 20201216
  Receipt Date: 20201216
  Transmission Date: 20210114
  Serious: Yes (Hospitalization)
  Sender: FDA-Public Use
  Company Number: None

PATIENT
  Age: 64 Year
  Sex: Male
  Weight: 145.15 kg

DRUGS (1)
  1. VANCOMYCIN (VANCOMYCIN HCL 100MG/ML INJ) [Suspect]
     Active Substance: VANCOMYCIN HYDROCHLORIDE
     Indication: CELLULITIS
     Route: 042
     Dates: start: 20200822, end: 20200822

REACTIONS (14)
  - Swollen tongue [None]
  - Erythema [None]
  - Hypertension [None]
  - Infusion related reaction [None]
  - Blood pressure systolic decreased [None]
  - Dyspepsia [None]
  - Anaphylactic reaction [None]
  - Swelling of eyelid [None]
  - Respiratory depression [None]
  - Angioedema [None]
  - Rash [None]
  - Erythema multiforme [None]
  - Enlarged uvula [None]
  - Lip swelling [None]

NARRATIVE: CASE EVENT DATE: 20200822
